FAERS Safety Report 14525164 (Version 2)
Quarter: 2018Q1

REPORT INFORMATION
  Report Type: Report from Study
  Country: AR (occurrence: AR)
  Receive Date: 20180213
  Receipt Date: 20180223
  Transmission Date: 20180509
  Serious: Yes (Death, Hospitalization)
  Sender: FDA-Public Use
  Company Number: PHHY2018AR023537

PATIENT
  Sex: Female

DRUGS (1)
  1. ENTRESTO [Suspect]
     Active Substance: SACUBITRIL\VALSARTAN
     Indication: CARDIAC FAILURE
     Dosage: UNK
     Route: 065
     Dates: start: 20161104

REACTIONS (7)
  - Cardiac disorder [Fatal]
  - Thought blocking [Unknown]
  - Diabetes mellitus [Unknown]
  - Stress [Unknown]
  - Hypertension [Unknown]
  - General physical health deterioration [Fatal]
  - Peripheral swelling [Unknown]
